FAERS Safety Report 23433922 (Version 1)
Quarter: 2024Q1

REPORT INFORMATION
  Report Type: Report from Study
  Country: IL (occurrence: IL)
  Receive Date: 20240123
  Receipt Date: 20240123
  Transmission Date: 20240409
  Serious: Yes (Hospitalization)
  Sender: FDA-Public Use
  Company Number: IL-AstraZeneca-2024A015333

PATIENT
  Age: 57 Year
  Sex: Female

DRUGS (2)
  1. ENHERTU [Suspect]
     Active Substance: FAM-TRASTUZUMAB DERUXTECAN-NXKI
     Indication: HER2 positive breast cancer
     Dosage: 5.4 MG/KG, ONCE EVERY 3 WK
     Route: 042
  2. ENHERTU [Suspect]
     Active Substance: FAM-TRASTUZUMAB DERUXTECAN-NXKI
     Dosage: 4.4 MG/KG, ONCE EVERY 3 WK
     Route: 042

REACTIONS (4)
  - Electrolyte imbalance [Not Recovered/Not Resolved]
  - Hypocalcaemia [Not Recovered/Not Resolved]
  - Hypokalaemia [Not Recovered/Not Resolved]
  - Nausea [Recovered/Resolved]
